FAERS Safety Report 7666002-7 (Version None)
Quarter: 2011Q3

REPORT INFORMATION
  Report Type: 
  Country: None (occurrence: None)
  Receive Date: 20110806
  Receipt Date: 20110317
  Transmission Date: 20111222
  Serious: No
  Sender: FDA-Public Use
  Company Number: US-ABBOTT-11P-163-0712411-00

PATIENT
  Sex: Male
  Weight: 108.96 kg

DRUGS (4)
  1. NIASPAN [Suspect]
     Indication: BLOOD TRIGLYCERIDES INCREASED
     Dates: start: 20090101
  2. NIASPAN [Suspect]
     Indication: BLOOD CHOLESTEROL
  3. CRESTOR [Concomitant]
     Indication: PRODUCT USED FOR UNKNOWN INDICATION
  4. IBUPROFEN [Concomitant]
     Indication: ARTHRITIS
     Dosage: SEVERAL 1000MG DAILY

REACTIONS (2)
  - FLUSHING [None]
  - SKIN BURNING SENSATION [None]
